FAERS Safety Report 9614553 (Version 6)
Quarter: 2013Q4

REPORT INFORMATION
  Report Type: Spontaneous
  Country: GB (occurrence: GB)
  Receive Date: 20131011
  Receipt Date: 20131206
  Transmission Date: 20140711
  Serious: Yes (Hospitalization)
  Sender: FDA-Public Use
  Company Number: PHFR2013GB005694

PATIENT
  Age: 38 Year
  Sex: Male

DRUGS (7)
  1. CLOZARIL [Suspect]
     Indication: SCHIZOPHRENIA
     Dosage: UNK
     Route: 048
     Dates: start: 20110927
  2. CLOZARIL [Suspect]
     Dosage: 350 MG, DAILY
     Route: 048
     Dates: start: 201108
  3. CLOZARIL [Suspect]
     Dosage: 225/50MG
  4. LANSOPRAZOLE [Concomitant]
     Dosage: 30 MG, DAILY
     Route: 048
  5. ASCORBIC ACID [Concomitant]
     Dosage: 200 MG, DAILY
     Route: 048
  6. SODIUM PICOSULFATE [Concomitant]
     Dosage: 5 ML, DAILY
     Route: 048
  7. LACTULOSE [Concomitant]
     Dosage: 20 ML, DAILY
     Route: 048

REACTIONS (4)
  - Wound infection [Recovering/Resolving]
  - Renal impairment [Not Recovered/Not Resolved]
  - Glomerular filtration rate decreased [Unknown]
  - Antipsychotic drug level increased [Unknown]
